FAERS Safety Report 13696991 (Version 2)
Quarter: 2017Q3

REPORT INFORMATION
  Report Type: Spontaneous
  Country: AR (occurrence: AR)
  Receive Date: 20170628
  Receipt Date: 20170711
  Transmission Date: 20171127
  Serious: Yes (Other)
  Sender: FDA-Public Use
  Company Number: PHHY2017AR093283

PATIENT
  Sex: Female

DRUGS (1)
  1. DIOVAN [Suspect]
     Active Substance: VALSARTAN
     Indication: HYPERTENSION
     Dosage: 80 MG, QD
     Route: 065

REACTIONS (8)
  - Dysarthria [Unknown]
  - Disorientation [Unknown]
  - Vomiting [Not Recovered/Not Resolved]
  - Gait inability [Unknown]
  - Blood pressure increased [Unknown]
  - Malaise [Unknown]
  - Dysgeusia [Not Recovered/Not Resolved]
  - Dyspepsia [Unknown]
